FAERS Safety Report 8206186-5 (Version None)
Quarter: 2012Q1

REPORT INFORMATION
  Report Type: 
  Country: None (occurrence: None)
  Receive Date: 20120313
  Receipt Date: 20111104
  Transmission Date: 20120608
  Serious: Yes (Other)
  Sender: FDA-Public Use
  Company Number: PHHY2011BR098261

PATIENT
  Sex: Female

DRUGS (3)
  1. BUDESONIDE [Suspect]
     Indication: ASTHMA
     Dosage: 1 DF, A DAY
  2. FORMOTEROL FUMARATE [Suspect]
     Indication: ASTHMA
     Dosage: 1 DF, BID
  3. XOLAIR [Suspect]
     Indication: ASTHMA
     Dosage: 300 MG, 150 MG IN EACH ARM
     Dates: start: 20110921

REACTIONS (2)
  - ASTHMATIC CRISIS [None]
  - NASOPHARYNGITIS [None]
